FAERS Safety Report 10778064 (Version 3)
Quarter: 2015Q1

REPORT INFORMATION
  Report Type: Spontaneous
  Country: US (occurrence: US)
  Receive Date: 20150209
  Receipt Date: 20150319
  Transmission Date: 20150721
  Serious: No
  Sender: FDA-Public Use
  Company Number: US-PFIZER INC-2015043330

PATIENT
  Age: 43 Year
  Sex: Male
  Weight: 88 kg

DRUGS (10)
  1. BENZONATATE. [Concomitant]
     Active Substance: BENZONATATE
     Dosage: 100 MG, UNK
  2. XANAX [Concomitant]
     Active Substance: ALPRAZOLAM
     Dosage: 0.25 MG, 2X/DAY AS NEEDED
  3. HYDROCHLOROTHIAZIDE. [Concomitant]
     Active Substance: HYDROCHLOROTHIAZIDE
     Indication: MENIERE^S DISEASE
     Dosage: 25 MG, DAILY
  4. PEPCID [Concomitant]
     Active Substance: FAMOTIDINE
     Dosage: UNK
  5. SUTENT [Suspect]
     Active Substance: SUNITINIB MALATE
     Indication: RENAL CELL CARCINOMA
     Dosage: 50 MG, ONCE A DAY AT 11 AM CYCLIC (28 DAYS ON / 14 DAYS OFF)
     Dates: start: 20150121
  6. AXO [Concomitant]
     Dosage: 20 MG, UNK
  7. PAROXETINE HYDROCHLORIDE. [Concomitant]
     Active Substance: PAROXETINE HYDROCHLORIDE
     Dosage: 20 MG, UNK
  8. ZOMETA [Concomitant]
     Active Substance: ZOLEDRONIC ACID
     Dosage: UNK, MONTHLY
     Route: 041
  9. PRENATAL VITAMINS [Concomitant]
     Active Substance: VITAMINS
     Dosage: UNK
  10. NARCO [Concomitant]
     Dosage: (HYDROCODONE BITARTRATE: 5 MG; ACETAMINOPHEN: 325 MG) AS NEEDED

REACTIONS (6)
  - Nail bed bleeding [Not Recovered/Not Resolved]
  - Night sweats [Recovered/Resolved]
  - Blister [Not Recovered/Not Resolved]
  - Renal cell carcinoma [Unknown]
  - Chromaturia [Unknown]
  - Disease progression [Unknown]

NARRATIVE: CASE EVENT DATE: 2015
